FAERS Safety Report 9937559 (Version 3)
Quarter: 2014Q2

REPORT INFORMATION
  Report Type: Spontaneous
  Country: US (occurrence: US)
  Receive Date: 20140303
  Receipt Date: 20140401
  Transmission Date: 20141212
  Serious: Yes (Hospitalization, Other)
  Sender: FDA-Public Use
  Company Number: US-BIOGENIDEC-2014BI018358

PATIENT
  Age: 49 Year
  Sex: Female

DRUGS (8)
  1. AVONEX [Suspect]
     Indication: RELAPSING-REMITTING MULTIPLE SCLEROSIS
     Route: 030
  2. AVONEX [Suspect]
     Indication: RELAPSING-REMITTING MULTIPLE SCLEROSIS
     Route: 030
     Dates: start: 20111214
  3. AVONEX [Suspect]
     Indication: RELAPSING-REMITTING MULTIPLE SCLEROSIS
     Route: 030
     Dates: start: 20140318
  4. SOLU MEDROL [Concomitant]
  5. XANAX [Concomitant]
  6. VICODIN [Concomitant]
  7. GILENYA [Concomitant]
  8. METHYLPREDNISOLONE [Concomitant]

REACTIONS (23)
  - Device leakage [Recovered/Resolved]
  - Device related infection [Recovered/Resolved]
  - Burning sensation [Recovered/Resolved]
  - Foreign body sensation in eyes [Recovered/Resolved]
  - Multiple sclerosis [Unknown]
  - Aphthous stomatitis [Recovered/Resolved]
  - Vascular pain [Unknown]
  - Eye infection [Unknown]
  - Cushing^s syndrome [Unknown]
  - Eye irritation [Unknown]
  - Lacrimation increased [Unknown]
  - Abnormal sensation in eye [Unknown]
  - Foreign body in eye [Not Recovered/Not Resolved]
  - Eye swelling [Not Recovered/Not Resolved]
  - Peroneal nerve palsy [Not Recovered/Not Resolved]
  - Back pain [Not Recovered/Not Resolved]
  - Vision blurred [Not Recovered/Not Resolved]
  - General symptom [Unknown]
  - Urticaria [Recovered/Resolved]
  - Chest discomfort [Recovered/Resolved]
  - Peripheral coldness [Unknown]
  - Influenza like illness [Recovered/Resolved]
  - Muscular weakness [Not Recovered/Not Resolved]
